FAERS Safety Report 25351846 (Version 1)
Quarter: 2025Q2

REPORT INFORMATION
  Report Type: Other
  Country: NZ (occurrence: NZ)
  Receive Date: 20250523
  Receipt Date: 20250523
  Transmission Date: 20250717
  Serious: Yes (Hospitalization, Other)
  Sender: ANI
  Company Number: NZ-ANIPHARMA-022864

PATIENT
  Sex: Female

DRUGS (3)
  1. LACTULOSE [Suspect]
     Active Substance: LACTULOSE
     Indication: Constipation
  2. METHADONE [Concomitant]
     Active Substance: METHADONE HYDROCHLORIDE
     Indication: Back pain
  3. LACTULOSE [Suspect]
     Active Substance: LACTULOSE
     Indication: Constipation

REACTIONS (1)
  - Pneumatosis intestinalis [Recovered/Resolved]
